FAERS Safety Report 14859225 (Version 2)
Quarter: 2018Q2

REPORT INFORMATION
  Report Type: Report from Study
  Country: US (occurrence: US)
  Receive Date: 20180508
  Receipt Date: 20180522
  Transmission Date: 20180711
  Serious: Yes (Other)
  Sender: FDA-Public Use
  Company Number: US-CIPLA LTD.-2018US17274

PATIENT

DRUGS (8)
  1. PEMBROLIZUMAB. [Suspect]
     Active Substance: PEMBROLIZUMAB
     Indication: BREAST CANCER
     Dosage: 2 MG/KG OVER 30 MIN EVERY 21 DAYS
     Route: 042
  2. GEMCITABINE [Suspect]
     Active Substance: GEMCITABINE\GEMCITABINE HYDROCHLORIDE
     Dosage: 600 MG/M2 ON DAY 1 AND DAY 8 EVERY 21 DAYS.
     Route: 065
  3. VINORELBINE [Suspect]
     Active Substance: VINORELBINE\VINORELBINE TARTRATE
     Indication: BREAST CANCER
     Dosage: 25 MG/M2 ON DAY 1 AND DAY 8 EVERY 21 DAYS
     Route: 065
  4. DEXAMETHASONE. [Suspect]
     Active Substance: DEXAMETHASONE
     Indication: PREMEDICATION
     Dosage: 12 MG, UNK
     Route: 042
  5. GEMCITABINE [Suspect]
     Active Substance: GEMCITABINE\GEMCITABINE HYDROCHLORIDE
     Dosage: 800 MG/M2 ON DAY 1 AND DAY 8 EVERY 21 DAYS.
     Route: 065
  6. VINORELBINE [Suspect]
     Active Substance: VINORELBINE\VINORELBINE TARTRATE
     Dosage: 20 MG/M2 ON DAY 1 AND DAY 8 EVERY 21 DAYS
     Route: 065
  7. VINORELBINE [Suspect]
     Active Substance: VINORELBINE\VINORELBINE TARTRATE
     Dosage: 15 MG/M2 ON DAY 1 AND DAY 8 EVERY 21 DAYS
     Route: 065
  8. GEMCITABINE [Suspect]
     Active Substance: GEMCITABINE\GEMCITABINE HYDROCHLORIDE
     Indication: BREAST CANCER
     Dosage: 1000 MG/M2 ON DAY 1 AND DAY 8 EVERY 21 DAYS.
     Route: 065

REACTIONS (15)
  - Thrombocytopenia [Unknown]
  - Neutropenia [Unknown]
  - Anaemia [Unknown]
  - Chills [Unknown]
  - White blood cell count decreased [Unknown]
  - Pharyngitis [Unknown]
  - Fatigue [Unknown]
  - Headache [Unknown]
  - Hypoalbuminaemia [Unknown]
  - Vomiting [Unknown]
  - Hyperglycaemia [Unknown]
  - Pain in extremity [Unknown]
  - Constipation [Unknown]
  - Nausea [Unknown]
  - Cough [Unknown]
